FAERS Safety Report 6533859-2 (Version None)
Quarter: 2010Q1

REPORT INFORMATION
  Report Type: 
  Country: None (occurrence: None)
  Receive Date: 20100111
  Receipt Date: 20091102
  Transmission Date: 20100710
  Serious: No
  Sender: FDA-Public Use
  Company Number: US-ABBOTT-09P-163-0606290-00

PATIENT
  Sex: Male
  Weight: 86.26 kg

DRUGS (4)
  1. VICODIN [Suspect]
     Indication: ARTHRALGIA
     Route: 065
  2. FEBUXOSTAT [Suspect]
     Indication: GOUT
     Route: 048
     Dates: start: 20091006
  3. DIOVAN [Concomitant]
     Indication: HYPERTENSION
     Route: 048
  4. LISINOPRIL [Concomitant]
     Indication: HYPERTENSION
     Route: 048

REACTIONS (4)
  - ARTHRALGIA [None]
  - FEELING ABNORMAL [None]
  - GOUT [None]
  - JOINT SWELLING [None]
